FAERS Safety Report 8495962-X (Version None)
Quarter: 2012Q3

REPORT INFORMATION
  Report Type: 
  Country: None (occurrence: None)
  Receive Date: 20120709
  Receipt Date: 20120629
  Transmission Date: 20120928
  Serious: Yes (Death, Hospitalization)
  Sender: FDA-Public Use
  Company Number: US-GLAXOSMITHKLINE-B0696086A

PATIENT
  Age: 85 Year
  Sex: Female

DRUGS (1)
  1. AVANDIA [Suspect]
     Indication: TYPE 2 DIABETES MELLITUS
     Route: 048
     Dates: start: 19990101, end: 20090101

REACTIONS (4)
  - CARDIAC FAILURE CONGESTIVE [None]
  - AORTIC STENOSIS [None]
  - CEREBROVASCULAR ACCIDENT [None]
  - DEATH [None]
